FAERS Safety Report 24139574 (Version 1)
Quarter: 2024Q3

REPORT INFORMATION
  Report Type: Spontaneous
  Country: AU (occurrence: AU)
  Receive Date: 20240726
  Receipt Date: 20240726
  Transmission Date: 20241017
  Serious: Yes (Hospitalization)
  Sender: ROCHE
  Company Number: AU-ROCHE-10000030301

PATIENT
  Age: 68 Year
  Sex: Female

DRUGS (6)
  1. ACTEMRA [Suspect]
     Active Substance: TOCILIZUMAB
     Indication: Product used for unknown indication
     Route: 058
  2. BARICITINIB [Suspect]
     Active Substance: BARICITINIB
     Indication: Product used for unknown indication
     Route: 058
  3. ADALIMUMAB [Suspect]
     Active Substance: ADALIMUMAB\ISOPROPYL ALCOHOL
     Indication: Product used for unknown indication
     Route: 058
     Dates: start: 20060413
  4. RINVOQ [Suspect]
     Active Substance: UPADACITINIB
     Indication: Product used for unknown indication
     Route: 048
  5. ABATACEPT [Concomitant]
     Active Substance: ABATACEPT
     Route: 058
  6. RITUXIMAB [Concomitant]
     Active Substance: RITUXIMAB

REACTIONS (13)
  - Arthropathy [Unknown]
  - Blood test abnormal [Recovered/Resolved]
  - Condition aggravated [Unknown]
  - COVID-19 [Unknown]
  - Drug ineffective [Unknown]
  - Herpes zoster [Unknown]
  - Limb discomfort [Unknown]
  - Lumbosacral plexopathy [Unknown]
  - Mass [Unknown]
  - Muscular weakness [Unknown]
  - Neurogenic bladder [Unknown]
  - Perineal rash [Unknown]
  - Rheumatoid arthritis [Recovered/Resolved]

NARRATIVE: CASE EVENT DATE: 20060413
